FAERS Safety Report 18692149 (Version 1)
Quarter: 2021Q1

REPORT INFORMATION
  Report Type: Spontaneous
  Country: FR (occurrence: FR)
  Receive Date: 20210102
  Receipt Date: 20210102
  Transmission Date: 20210419
  Serious: Yes (Hospitalization)
  Sender: FDA-Public Use
  Company Number: NVSC2020FR343996

PATIENT
  Age: 92 Year
  Sex: Female
  Weight: 65 kg

DRUGS (2)
  1. CLOXACILLIN [Suspect]
     Active Substance: CLOXACILLIN
     Indication: INFECTION
     Dosage: 2 G,QD
     Route: 042
     Dates: start: 20201208, end: 20201210
  2. METHOTREXATE. [Suspect]
     Active Substance: METHOTREXATE
     Indication: PEMPHIGOID
     Dosage: 7.5 MG
     Route: 058
     Dates: start: 20201204, end: 20201204

REACTIONS (1)
  - Pancytopenia [Recovering/Resolving]

NARRATIVE: CASE EVENT DATE: 20201209
